FAERS Safety Report 5732144-6 (Version None)
Quarter: 2008Q2

REPORT INFORMATION
  Report Type: 
  Country: None (occurrence: None)
  Receive Date: 20080508
  Receipt Date: 20080428
  Transmission Date: 20081010
  Serious: Yes (Hospitalization, Congenital Anomaly, Other)
  Sender: FDA-Public Use
  Company Number: GB-ABBOTT-06P-167-0339816-00

PATIENT
  Sex: Male

DRUGS (1)
  1. VALPROIC ACID [Suspect]
     Indication: DRUG EXPOSURE DURING PREGNANCY
     Route: 064

REACTIONS (55)
  - ABNORMAL BEHAVIOUR [None]
  - AGGRESSION [None]
  - ANGER [None]
  - ASTIGMATISM [None]
  - ATTENTION DEFICIT/HYPERACTIVITY DISORDER [None]
  - BREAST DISORDER MALE [None]
  - BREAST HYPOPLASIA [None]
  - COGNITIVE DISORDER [None]
  - COMMUNICATION DISORDER [None]
  - CONGENITAL EYELID MALFORMATION [None]
  - CONGENITAL HAND MALFORMATION [None]
  - CONGENITAL JAW MALFORMATION [None]
  - CONGENITAL NAIL DISORDER [None]
  - CONGENITAL NOSE MALFORMATION [None]
  - DEAFNESS [None]
  - DEVELOPMENTAL DELAY [None]
  - DISTURBANCE IN ATTENTION [None]
  - DRUG EXPOSURE DURING PREGNANCY [None]
  - DYSKINESIA [None]
  - DYSLEXIA [None]
  - DYSMORPHISM [None]
  - DYSPRAXIA [None]
  - EAR DISORDER [None]
  - ELBOW DEFORMITY [None]
  - FOETAL ANTICONVULSANT SYNDROME [None]
  - FOETAL DISTRESS SYNDROME [None]
  - FOOT DEFORMITY [None]
  - GROUP B STREPTOCOCCUS NEONATAL SEPSIS [None]
  - HYPERACUSIS [None]
  - HYPERTELORISM OF ORBIT [None]
  - HYPOGLYCAEMIA [None]
  - HYPOKINESIA [None]
  - INTERCOSTAL RETRACTION [None]
  - LEARNING DISORDER [None]
  - LIP DISORDER [None]
  - MICROPHTHALMOS [None]
  - MUSCLE TWITCHING [None]
  - MYOPIA [None]
  - NIPPLE DISORDER [None]
  - OBSESSIVE THOUGHTS [None]
  - OTITIS MEDIA [None]
  - PROMINENT EPICANTHAL FOLDS [None]
  - PULMONARY VALVE STENOSIS [None]
  - RESPIRATORY RATE INCREASED [None]
  - RETRACTED NIPPLE [None]
  - SKULL MALFORMATION [None]
  - SLEEP DISORDER [None]
  - SOCIAL PROBLEM [None]
  - SPEECH DISORDER DEVELOPMENTAL [None]
  - SPINAL COLUMN STENOSIS [None]
  - SYNDACTYLY [None]
  - TALIPES [None]
  - TRACHEOMALACIA [None]
  - VENTRICULAR SEPTAL DEFECT [None]
  - VISUAL DISTURBANCE [None]
